FAERS Safety Report 7378753-2 (Version None)
Quarter: 2011Q1

REPORT INFORMATION
  Report Type: 
  Country: None (occurrence: None)
  Receive Date: 20110328
  Receipt Date: 20110317
  Transmission Date: 20110831
  Serious: Yes (Hospitalization)
  Sender: FDA-Public Use
  Company Number: US-BAXTER-2011BH006822

PATIENT
  Age: 48 Year
  Sex: Male

DRUGS (2)
  1. DIANEAL [Suspect]
     Route: 033
     Dates: start: 20110101
  2. DIANEAL [Suspect]
     Indication: PERITONEAL DIALYSIS
     Route: 033
     Dates: start: 20100901, end: 20110101

REACTIONS (6)
  - MYALGIA [None]
  - NECK MASS [None]
  - PAROTITIS [None]
  - HEADACHE [None]
  - BACK PAIN [None]
  - NECK PAIN [None]
